FAERS Safety Report 5901633-3 (Version None)
Quarter: 2008Q3

REPORT INFORMATION
  Report Type: 
  Country: None (occurrence: None)
  Receive Date: 20080929
  Receipt Date: 20080916
  Transmission Date: 20090109
  Serious: Yes (Hospitalization, Other)
  Sender: FDA-Public Use
  Company Number: US-MERCK-0809USA00850

PATIENT
  Age: 60 Year
  Sex: Male

DRUGS (13)
  1. DECADRON SRC [Suspect]
     Route: 048
     Dates: start: 20080101, end: 20080601
  2. DECADRON SRC [Suspect]
     Route: 048
     Dates: start: 20080801
  3. REVLIMID [Suspect]
     Indication: MULTIPLE MYELOMA
     Route: 048
     Dates: start: 20080212, end: 20080606
  4. FLOMAX [Concomitant]
     Indication: BENIGN PROSTATIC HYPERPLASIA
     Route: 065
     Dates: start: 20080101
  5. ALLOPURINOL [Concomitant]
     Route: 065
  6. ASPIRIN [Concomitant]
     Indication: DIABETES MELLITUS
     Route: 065
  7. CLARITIN [Concomitant]
     Route: 065
  8. SODIUM BICARBONATE [Concomitant]
     Route: 065
  9. VELCADE [Suspect]
     Route: 065
     Dates: start: 20080101, end: 20080606
  10. WARFARIN [Concomitant]
     Indication: CATHETER PLACEMENT
     Route: 065
     Dates: start: 20080101, end: 20080601
  11. CYANOCOBALAMIN [Concomitant]
     Route: 065
  12. GLIPIZIDE [Concomitant]
     Indication: DIABETES MELLITUS
     Route: 065
  13. LOTENSIN HCT [Concomitant]
     Indication: HYPERTENSION
     Route: 065

REACTIONS (4)
  - BLOOD GLUCOSE INCREASED [None]
  - BLOOD PRESSURE INCREASED [None]
  - FEBRILE NEUTROPENIA [None]
  - MALAISE [None]
